FAERS Safety Report 14068203 (Version 1)
Quarter: 2017Q4

REPORT INFORMATION
  Report Type: Spontaneous
  Country: US (occurrence: US)
  Receive Date: 20171009
  Receipt Date: 20171009
  Transmission Date: 20180321
  Serious: Yes (Other)
  Sender: FDA-Public Use
  Company Number: None

PATIENT
  Age: 56 Year
  Sex: Female
  Weight: 60.75 kg

DRUGS (5)
  1. VERSED [Suspect]
     Active Substance: MIDAZOLAM HYDROCHLORIDE
  2. XANAX [Concomitant]
     Active Substance: ALPRAZOLAM
  3. ALOE VERA GEL [Concomitant]
     Active Substance: ALOE VERA LEAF
  4. VITAMIN D [Concomitant]
     Active Substance: CHOLECALCIFEROL
  5. MULTIVITAMIN [Concomitant]
     Active Substance: VITAMINS

REACTIONS (3)
  - Panic attack [None]
  - Palpitations [None]
  - Nightmare [None]

NARRATIVE: CASE EVENT DATE: 20170501
